FAERS Safety Report 24607158 (Version 1)
Quarter: 2024Q4

REPORT INFORMATION
  Report Type: Spontaneous
  Country: US (occurrence: None)
  Receive Date: 20241111
  Receipt Date: 20241111
  Transmission Date: 20250115
  Serious: No
  Sender: Public
  Company Number: None

PATIENT
  Age: 75 Year
  Sex: Female

DRUGS (1)
  1. HUMIRA [Suspect]
     Active Substance: ADALIMUMAB
     Indication: Pyoderma gangrenosum
     Dosage: OTHER FREQUENCY : EVERY2WKSASDIRECTED;?
     Route: 058
     Dates: start: 202409

REACTIONS (2)
  - Ulcer [None]
  - Therapy interrupted [None]
